FAERS Safety Report 16836070 (Version 5)
Quarter: 2020Q2

REPORT INFORMATION
  Report Type: Report from Study
  Country: None (occurrence: BE)
  Receive Date: 20190921
  Receipt Date: 20200623
  Transmission Date: 20200713
  Serious: Yes (Hospitalization)
  Sender: FDA-Public Use
  Company Number: BE-ABBVIE-19K-013-2862070-00

PATIENT
  Sex: Male

DRUGS (9)
  1. DUODOPA [Suspect]
     Active Substance: CARBIDOPA\LEVODOPA
     Indication: PARKINSON^S DISEASE
     Dosage: MD= 7ML, CD= 4.2ML/HR DURING 16HRS, ED= 4ML
     Route: 050
     Dates: start: 20110228, end: 20110303
  2. PROLOPA [Concomitant]
     Active Substance: BENSERAZIDE\LEVODOPA
     Dosage: FORM STRENGTH: 100MG/25MG; RESCUE MEDICATION
  3. DUODOPA [Suspect]
     Active Substance: CARBIDOPA\LEVODOPA
     Dosage: MD= 7ML, CD= 3.2ML/HR DURING 16HRS, ED= 4ML
     Route: 050
     Dates: start: 20190213, end: 20190708
  4. DUODOPA [Suspect]
     Active Substance: CARBIDOPA\LEVODOPA
     Dosage: MD= 7ML, CD= 2.9ML/HR DURING 16HRS, ED= 4ML
     Route: 050
     Dates: start: 20190708, end: 20191021
  5. DUODOPA [Suspect]
     Active Substance: CARBIDOPA\LEVODOPA
     Dosage: MD= 7ML, CD= 2.9ML/HR DURING 16HRS, ED= 3.5ML
     Route: 050
     Dates: start: 20191021, end: 20191210
  6. DUODOPA [Suspect]
     Active Substance: CARBIDOPA\LEVODOPA
     Dosage: WITH MD= 7ML, CD= 2.9ML/HR DURING 16HRS, ED= 4ML?DOSE INCREASED.
     Route: 050
     Dates: start: 20191210, end: 20200618
  7. DUODOPA [Suspect]
     Active Substance: CARBIDOPA\LEVODOPA
     Dosage: MD= 5ML, CD= 3.3ML/HR DURING 16HRS, ED= 3.5ML?DNS INCREASED THE CONTINUOUS DOSE
     Route: 050
     Dates: start: 20200618
  8. PROLOPA [Concomitant]
     Active Substance: BENSERAZIDE\LEVODOPA
     Indication: PARKINSON^S DISEASE
     Dosage: 100MG/25MG; 0.5 TABLET 4 TIMES A DAY/7 TABLETS IN 500CC OF WATER/50CC AT A TIME (125 DISP)
     Route: 048
  9. DUODOPA [Suspect]
     Active Substance: CARBIDOPA\LEVODOPA
     Dosage: DOSES CONTINUOUSLY MONITORED AND ADAPTED
     Route: 050
     Dates: start: 20110303, end: 20190213

REACTIONS (9)
  - Muscle spasms [Unknown]
  - Freezing phenomenon [Not Recovered/Not Resolved]
  - Abnormal dreams [Unknown]
  - Device alarm issue [Unknown]
  - Drug abuse [Unknown]
  - Dyskinesia [Not Recovered/Not Resolved]
  - Stoma site discharge [Recovered/Resolved]
  - Feeling abnormal [Not Recovered/Not Resolved]
  - Stoma site erythema [Recovered/Resolved]
